FAERS Safety Report 8354980-2 (Version None)
Quarter: 2012Q2

REPORT INFORMATION
  Report Type: 
  Country: None (occurrence: None)
  Receive Date: 20120511
  Receipt Date: 20120502
  Transmission Date: 20120825
  Serious: Yes (Hospitalization)
  Sender: FDA-Public Use
  Company Number: US-JNJFOC-20120503928

PATIENT
  Sex: Male
  Weight: 12.4 kg

DRUGS (9)
  1. DIAZEPAM [Suspect]
     Indication: CONVULSION
     Route: 048
  2. DEPAKOTE [Suspect]
     Route: 048
  3. DIAZEPAM [Suspect]
     Route: 048
     Dates: start: 20120209
  4. MELATONIN [Concomitant]
     Route: 048
     Dates: start: 20050101
  5. KEPPRA [Concomitant]
     Route: 048
     Dates: start: 20120212
  6. POLY-VI-SOL [Concomitant]
     Route: 048
     Dates: start: 20100101
  7. DEPAKOTE [Suspect]
     Indication: CONVULSION
     Route: 048
     Dates: start: 20120209
  8. RANITIDINE [Concomitant]
     Route: 048
     Dates: start: 20050101
  9. TOPAMAX [Suspect]
     Indication: CONVULSION
     Dosage: 45 MG IN THE AM AND 60 MG IN THE PM
     Route: 048
     Dates: start: 20110620

REACTIONS (4)
  - LETHARGY [None]
  - DEHYDRATION [None]
  - MENTAL STATUS CHANGES [None]
  - SOMNOLENCE [None]
